APPROVED DRUG PRODUCT: CEFDINIR
Active Ingredient: CEFDINIR
Strength: 300MG
Dosage Form/Route: CAPSULE;ORAL
Application: A065330 | Product #001 | TE Code: AB
Applicant: CHARTWELL RX SCIENCES LLC
Approved: Apr 6, 2007 | RLD: No | RS: Yes | Type: RX